FAERS Safety Report 12603501 (Version 1)
Quarter: 2016Q3

REPORT INFORMATION
  Report Type: Spontaneous
  Country: BR (occurrence: BR)
  Receive Date: 20160728
  Receipt Date: 20160728
  Transmission Date: 20161109
  Serious: Yes (Hospitalization)
  Sender: FDA-Public Use
  Company Number: BR-DSJP-DSU-2016-125504

PATIENT

DRUGS (4)
  1. SIMVASTATIN. [Concomitant]
     Active Substance: SIMVASTATIN
     Indication: BLOOD CHOLESTEROL ABNORMAL
     Dosage: 1 TABLET, QD
     Route: 048
     Dates: start: 2011
  2. NORVASC [Suspect]
     Active Substance: AMLODIPINE BESYLATE
     Indication: HYPERTENSION
     Dosage: 5 MG, QD
     Route: 048
     Dates: start: 2011, end: 20160404
  3. DETRIX [Concomitant]
     Indication: LABYRINTHITIS
     Dosage: 1 TABLET, OCCASIONALLY
     Route: 048
  4. OLMETEC HCT [Suspect]
     Active Substance: HYDROCHLOROTHIAZIDE\OLMESARTAN MEDOXOMIL
     Indication: HYPERTENSION
     Dosage: 40/25 MG, QD
     Route: 048
     Dates: start: 2011, end: 20160404

REACTIONS (11)
  - Weight decreased [Unknown]
  - Feeding disorder [Unknown]
  - Cerebrovascular accident [Unknown]
  - Gait disturbance [Unknown]
  - Decubitus ulcer [Unknown]
  - Asthenia [Unknown]
  - Pneumonia aspiration [Unknown]
  - Hemiplegia [Unknown]
  - Infection [Unknown]
  - Faeces soft [Unknown]
  - Bedridden [Unknown]

NARRATIVE: CASE EVENT DATE: 2016
